FAERS Safety Report 8314336-5 (Version None)
Quarter: 2012Q2

REPORT INFORMATION
  Report Type: 
  Country: None (occurrence: None)
  Receive Date: 20120426
  Receipt Date: 20120424
  Transmission Date: 20120825
  Serious: Yes (Hospitalization)
  Sender: FDA-Public Use
  Company Number: KR-ROCHE-1060170

PATIENT
  Sex: Female
  Weight: 47 kg

DRUGS (4)
  1. XELODA [Suspect]
     Indication: GASTRIC CANCER
     Dosage: DATE OF MOST RECENT DOSE OF CAPECITABINE PRIOR TO AE ONSET 12 APR 2012, LAST DOSE TAKEN: 1000 MG/M2
     Route: 048
     Dates: start: 20120329
  2. PERTUZUMAB [Suspect]
     Indication: GASTRIC CANCER
     Dosage: DATE OF MOST RECENT DOSE OF PERTUZUMAB PRIOR TO AE ONSET 29 MAR 2012, LAST DOSE: 840 MG
     Route: 042
     Dates: start: 20120329
  3. HERCEPTIN [Suspect]
     Indication: GASTRIC CANCER
     Dosage: DATE OF MOST RECENT DOSE OF TRASTUZUMAB PRIOR TO AE ONSET 29 MAR 2012, LAST DOSE: 376 MG
     Route: 042
     Dates: start: 20120329
  4. CISPLATIN [Suspect]
     Indication: GASTRIC CANCER
     Dosage: DATE OF MOST RECENT DOSE OF CISPLATIN PRIOR TO AE ONSET 29 MAR 2012, LAST DOSE: 80 MG/M2
     Route: 042
     Dates: start: 20120329

REACTIONS (4)
  - VOMITING [None]
  - RENAL FAILURE ACUTE [None]
  - DIARRHOEA [None]
  - ILEUS [None]
